FAERS Safety Report 7701262-5 (Version None)
Quarter: 2011Q3

REPORT INFORMATION
  Report Type: 
  Country: None (occurrence: None)
  Receive Date: 20110822
  Receipt Date: 20110811
  Transmission Date: 20111222
  Serious: Yes (Hospitalization)
  Sender: FDA-Public Use
  Company Number: FR-GLAXOSMITHKLINE-B0738921A

PATIENT
  Sex: Female
  Weight: 8.3 kg

DRUGS (2)
  1. VOGALENE [Concomitant]
     Indication: VOMITING
     Dosage: 1UNIT SINGLE DOSE
     Route: 054
     Dates: start: 20110716, end: 20110716
  2. ZOPHREN [Suspect]
     Indication: VOMITING
     Route: 042
     Dates: start: 20110717, end: 20110717

REACTIONS (1)
  - CONVULSION [None]
